FAERS Safety Report 6710432-4 (Version None)
Quarter: 2010Q2

REPORT INFORMATION
  Report Type: 
  Country: None (occurrence: None)
  Receive Date: 20100504
  Receipt Date: 20100426
  Transmission Date: 20101027
  Serious: Yes (Other)
  Sender: FDA-Public Use
  Company Number: PHHY2010US27611

PATIENT
  Sex: Male

DRUGS (1)
  1. EXTAVIA [Suspect]
     Dosage: 0.3 MG, QOD
     Route: 058

REACTIONS (2)
  - FACIAL PALSY [None]
  - HYPOAESTHESIA [None]
